FAERS Safety Report 6644157-0 (Version None)
Quarter: 2010Q1

REPORT INFORMATION
  Report Type: 
  Country: None (occurrence: None)
  Receive Date: 20100322
  Receipt Date: 20100317
  Transmission Date: 20100710
  Serious: Yes (Death)
  Sender: FDA-Public Use
  Company Number: PHEH2010US03177

PATIENT
  Sex: Female

DRUGS (2)
  1. EXJADE [Suspect]
     Indication: CHRONIC MYELOID LEUKAEMIA
     Dosage: 2000 MG DAILY
     Route: 048
     Dates: start: 20080828
  2. EXJADE [Suspect]
     Indication: LYMPHOPROLIFERATIVE DISORDER

REACTIONS (1)
  - CHRONIC MYELOID LEUKAEMIA [None]
